FAERS Safety Report 6086596-5 (Version None)
Quarter: 2009Q1

REPORT INFORMATION
  Report Type: 
  Country: None (occurrence: None)
  Receive Date: 20090223
  Receipt Date: 20090210
  Transmission Date: 20090719
  Serious: Yes (Hospitalization)
  Sender: FDA-Public Use
  Company Number: FR-PFIZER INC-2009153589

PATIENT

DRUGS (3)
  1. XANAX [Suspect]
     Indication: ANXIETY
     Dosage: UNK
     Route: 048
     Dates: start: 20081218, end: 20081224
  2. IBUPROFEN TABLETS [Suspect]
     Indication: HEADACHE
     Dosage: 800 MG, 1X/DAY
     Route: 048
     Dates: start: 20080216, end: 20081224
  3. PARACETAMOL [Concomitant]
     Dosage: UNK
     Dates: end: 20081224

REACTIONS (1)
  - PARANOIA [None]
